FAERS Safety Report 10378775 (Version 3)
Quarter: 2014Q4

REPORT INFORMATION
  Report Type: Spontaneous
  Country: DE (occurrence: JP)
  Receive Date: 20140812
  Receipt Date: 20141114
  Transmission Date: 20150528
  Serious: Yes (Other)
  Sender: FDA-Public Use
  Company Number: JP-MERZ NORTH AMERICA, INC.-14MRZ-00291

PATIENT
  Age: 81 Year
  Sex: Male

DRUGS (1)
  1. AETHOXYSKLEROL [Suspect]
     Active Substance: POLIDOCANOL
     Indication: VARICOSE VEIN
     Dosage: 100MG

REACTIONS (8)
  - Injection site cellulitis [None]
  - Infusion site erythema [None]
  - Lymphangitis [None]
  - Skin exfoliation [None]
  - Ulcer [None]
  - Injection site warmth [None]
  - Thrombophlebitis [None]
  - Necrosis [None]

NARRATIVE: CASE EVENT DATE: 20140619
